FAERS Safety Report 6553059-X (Version None)
Quarter: 2010Q1

REPORT INFORMATION
  Report Type: 
  Country: None (occurrence: None)
  Receive Date: 20100122
  Receipt Date: 20100112
  Transmission Date: 20100710
  Serious: Yes (Hospitalization)
  Sender: FDA-Public Use
  Company Number: 230398J10USA

PATIENT
  Age: 65 Year
  Sex: Female
  Weight: 61 kg

DRUGS (4)
  1. REBIF [Suspect]
     Indication: MULTIPLE SCLEROSIS
     Dosage: 44 MCG, 3 IN 1 WEEKS, SUBCUTANEOUS
     Route: 058
     Dates: start: 20091012
  2. UNSPECIFIED HIGH CHOLESTEROL MEDICATION (OTHER CHOLESTEROL AND TRIGLYC [Concomitant]
  3. UNSPECIFIED HIGH BLOOD PRESSURE( ANTIHYPERTENSI'VES) [Concomitant]
  4. UNSPECIFED OSTEOPOROSIS MEDICATION(ALL OTHER THERAPEUTIC PRODUCTS) [Concomitant]

REACTIONS (3)
  - FALL [None]
  - MUSCLE SPASMS [None]
  - PELVIC FRACTURE [None]
